FAERS Safety Report 14314851 (Version 1)
Quarter: 2017Q4

REPORT INFORMATION
  Report Type: Spontaneous
  Country: ES (occurrence: ES)
  Receive Date: 20171221
  Receipt Date: 20171221
  Transmission Date: 20180321
  Serious: Yes (Death, Other)
  Sender: FDA-Public Use
  Company Number: ES-JNJFOC-20171218334

PATIENT

DRUGS (3)
  1. RIBAVIRIN. [Suspect]
     Active Substance: RIBAVIRIN
     Indication: HEPATITIS C
     Dosage: 1000 OR 1200 MG IN PATIENTS {75KG OR }75KG, RESPECTIVELY
     Route: 065
  2. SOFOSBUVIR [Suspect]
     Active Substance: SOFOSBUVIR
     Indication: HEPATITIS C
     Route: 065
  3. SIMEPREVIR [Suspect]
     Active Substance: SIMEPREVIR
     Indication: HEPATITIS C
     Route: 065

REACTIONS (28)
  - Myositis [Unknown]
  - Gastrointestinal disorder [Unknown]
  - Renal impairment [Unknown]
  - Adverse event [Unknown]
  - Abdominal pain [Unknown]
  - Headache [Unknown]
  - Rash [Unknown]
  - Therapy non-responder [Unknown]
  - Pneumonia [Fatal]
  - Aplasia [Unknown]
  - Pruritus [Unknown]
  - Remission not achieved [Unknown]
  - Hyperbilirubinaemia [Unknown]
  - Hypersensitivity [Unknown]
  - Nervous system disorder [Unknown]
  - Diarrhoea [Unknown]
  - Fatigue [Unknown]
  - Anaemia [Unknown]
  - Insomnia [Unknown]
  - Asthenia [Unknown]
  - Influenza [Unknown]
  - Infection [Unknown]
  - Skin disorder [Unknown]
  - Completed suicide [Fatal]
  - Hepatic failure [Unknown]
  - Nausea [Unknown]
  - Off label use [Unknown]
  - Product use issue [Unknown]
